FAERS Safety Report 7364121-6 (Version None)
Quarter: 2011Q1

REPORT INFORMATION
  Report Type: 
  Country: None (occurrence: None)
  Receive Date: 20110321
  Receipt Date: 20110316
  Transmission Date: 20110831
  Serious: Yes (Death, Hospitalization, Other)
  Sender: FDA-Public Use
  Company Number: PHHY2010CA41851

PATIENT
  Sex: Male

DRUGS (3)
  1. EXJADE [Suspect]
     Indication: APLASTIC ANAEMIA
     Dosage: 2000 MG, QD
     Route: 048
     Dates: start: 20100501
  2. HOMEOPATHIC PREPARATIONS [Concomitant]
  3. ZOPICLONE [Concomitant]
     Dosage: 5 MG, QHS

REACTIONS (7)
  - DEATH [None]
  - DIARRHOEA [None]
  - BLOOD IRON INCREASED [None]
  - HEAD AND NECK CANCER [None]
  - PLATELET COUNT DECREASED [None]
  - MEMORY IMPAIRMENT [None]
  - URINE COLOUR ABNORMAL [None]
